FAERS Safety Report 22269753 (Version 1)
Quarter: 2023Q2

REPORT INFORMATION
  Report Type: Spontaneous
  Country: US (occurrence: US)
  Receive Date: 20230501
  Receipt Date: 20230501
  Transmission Date: 20230721
  Serious: No
  Sender: FDA-Public Use
  Company Number: US-IMMUNOCORE, LTD-2023-IMC-001458

PATIENT
  Age: 30 Year
  Sex: Male

DRUGS (3)
  1. KIMMTRAK [Suspect]
     Active Substance: TEBENTAFUSP-TEBN
     Indication: Uveal melanoma
     Dosage: 20 MICROGRAM, WEEKLY, DOSE 1
     Route: 042
     Dates: start: 20230222, end: 20230222
  2. KIMMTRAK [Suspect]
     Active Substance: TEBENTAFUSP-TEBN
     Dosage: 20 MICROGRAM, WEEKLY, DOSE 2
     Route: 042
     Dates: start: 20230308, end: 20230308
  3. SODIUM CHLORIDE [Concomitant]
     Active Substance: SODIUM CHLORIDE
     Indication: Product used for unknown indication
     Dosage: 2 LITER, PRN, 1 LITER PRE AND 1 LITER POST
     Route: 042
     Dates: start: 20220308, end: 20220308

REACTIONS (2)
  - Hyponatraemia [Recovered/Resolved]
  - Treatment delayed [Recovered/Resolved]

NARRATIVE: CASE EVENT DATE: 20230301
